FAERS Safety Report 10987008 (Version 1)
Quarter: 2015Q2

REPORT INFORMATION
  Report Type: Spontaneous
  Country: US (occurrence: None)
  Receive Date: 20150402
  Receipt Date: 20150402
  Transmission Date: 20150821
  Serious: Yes (Other)
  Sender: FDA-Public Use
  Company Number: 2801706

PATIENT
  Sex: Male

DRUGS (3)
  1. CISPLATIN. [Suspect]
     Active Substance: CISPLATIN
     Indication: HEPATOBLASTOMA
  2. VINCRISTINE SULFATE. [Suspect]
     Active Substance: VINCRISTINE SULFATE
     Indication: HEPATOBLASTOMA
  3. FLUOROURACIL. [Concomitant]
     Active Substance: FLUOROURACIL
     Indication: HEPATOBLASTOMA

REACTIONS (13)
  - Candida infection [None]
  - Staphylococcal sepsis [None]
  - Dermatitis diaper [None]
  - Metabolic acidosis [None]
  - Hyperglycaemia [None]
  - Hypercalcaemia [None]
  - Febrile neutropenia [None]
  - Femur fracture [None]
  - Anaemia [None]
  - Device related infection [None]
  - Thrombocytopenia [None]
  - Fracture [None]
  - Osteopenia [None]
